FAERS Safety Report 24875529 (Version 1)
Quarter: 2025Q1

REPORT INFORMATION
  Report Type: Spontaneous
  Country: US (occurrence: None)
  Receive Date: 20250122
  Receipt Date: 20250122
  Transmission Date: 20250409
  Serious: Yes (Disabling)
  Sender: FDA-CTU
  Company Number: None

PATIENT
  Sex: Male
  Weight: 102.06 kg

DRUGS (11)
  1. ZOLOFT [Suspect]
     Active Substance: SERTRALINE HYDROCHLORIDE
     Indication: Depression
     Dosage: FREQUENCY : DAILY;?
     Route: 048
  2. PROZAC [Suspect]
     Active Substance: FLUOXETINE HYDROCHLORIDE
     Indication: Obsessive-compulsive disorder
     Dosage: FREQUENCY : DAILY;?
     Route: 048
     Dates: start: 20081101, end: 20091215
  3. TAMOXIFEN [Suspect]
     Active Substance: TAMOXIFEN
  4. CANNABIS SATIVA SUBSP. INDICA TOP [Suspect]
     Active Substance: CANNABIS SATIVA SUBSP. INDICA TOP
  5. SILDENAFIL [Concomitant]
     Active Substance: SILDENAFIL
  6. UNSPECIFIED INGREDIENT [Concomitant]
     Active Substance: UNSPECIFIED INGREDIENT
  7. oxymetazoline intranasal [Concomitant]
  8. VITAMIN D [Concomitant]
     Active Substance: VITAMIN D NOS
  9. VITAMIN C [Concomitant]
     Active Substance: ASCORBIC ACID
  10. nicotinamide mononucleotide (NMN) [Concomitant]
  11. tongkat [Concomitant]

REACTIONS (10)
  - Brain fog [None]
  - Drug ineffective [None]
  - Mysophobia [None]
  - Sexual dysfunction [None]
  - Micropenis [None]
  - Loss of libido [None]
  - Genital anaesthesia [None]
  - Cognitive disorder [None]
  - Erectile dysfunction [None]
  - Erectile dysfunction [None]
